FAERS Safety Report 4366089-3 (Version None)
Quarter: 2004Q2

REPORT INFORMATION
  Report Type: 
  Country: None (occurrence: None)
  Receive Date: 20040524
  Receipt Date: 20040514
  Transmission Date: 20050107
  Serious: Yes (Other)
  Sender: FDA-Public Use
  Company Number: 2004-05-0836

PATIENT
  Age: 25 Year
  Sex: Male

DRUGS (1)
  1. CELESTONE [Suspect]
     Dosage: ORAL
     Route: 048
     Dates: start: 20040502, end: 20040506

REACTIONS (1)
  - MANIA [None]
